FAERS Safety Report 15655348 (Version 2)
Quarter: 2020Q1

REPORT INFORMATION
  Report Type: Report from Study
  Country: None (occurrence: CA)
  Receive Date: 20181126
  Receipt Date: 20200316
  Transmission Date: 20200409
  Serious: Yes (Other)
  Sender: FDA-Public Use
  Company Number: CA-ABBVIE-18K-028-2530982-00

PATIENT
  Age: 64 Year
  Sex: Male
  Weight: 85.35 kg

DRUGS (10)
  1. HUMIRA [Suspect]
     Active Substance: ADALIMUMAB
     Route: 058
     Dates: start: 2018, end: 20181022
  2. VITAMIN B12 [Concomitant]
     Active Substance: CYANOCOBALAMIN
     Indication: PRODUCT USED FOR UNKNOWN INDICATION
     Route: 030
  3. TYLENOL [Concomitant]
     Active Substance: ACETAMINOPHEN
     Indication: ARTHRITIS
     Dosage: 2-3 PER DAY
  4. HUMIRA [Suspect]
     Active Substance: ADALIMUMAB
     Indication: RHEUMATOID ARTHRITIS
     Route: 058
     Dates: start: 20140324, end: 2018
  5. OXYCONTIN [Concomitant]
     Active Substance: OXYCODONE HYDROCHLORIDE
     Indication: PRODUCT USED FOR UNKNOWN INDICATION
  6. FERROUS FUMARATE [Concomitant]
     Active Substance: FERROUS FUMARATE
     Indication: PRODUCT USED FOR UNKNOWN INDICATION
  7. AMLODIPINE [Concomitant]
     Active Substance: AMLODIPINE BESYLATE
     Indication: PRODUCT USED FOR UNKNOWN INDICATION
  8. AMLODIPINE [Concomitant]
     Active Substance: AMLODIPINE BESYLATE
     Indication: PRODUCT USED FOR UNKNOWN INDICATION
  9. EPREX [Concomitant]
     Active Substance: ERYTHROPOIETIN
     Indication: PRODUCT USED FOR UNKNOWN INDICATION
  10. LIPIDIL [Concomitant]
     Active Substance: FENOFIBRATE
     Indication: PRODUCT USED FOR UNKNOWN INDICATION

REACTIONS (43)
  - Renal failure [Unknown]
  - Constipation [Not Recovered/Not Resolved]
  - Burning sensation [Unknown]
  - Chronic kidney disease [Unknown]
  - Lymphadenopathy [Unknown]
  - Upper respiratory tract infection [Unknown]
  - Fatigue [Not Recovered/Not Resolved]
  - Musculoskeletal stiffness [Unknown]
  - Malaise [Unknown]
  - Weight decreased [Unknown]
  - Urinary hesitation [Unknown]
  - Depression [Unknown]
  - Cardiac pacemaker insertion [Unknown]
  - Arthropathy [Unknown]
  - Sleep apnoea syndrome [Unknown]
  - Neutropenia [Unknown]
  - Dyspnoea exertional [Unknown]
  - Anxiety [Unknown]
  - Snoring [Unknown]
  - Dyslipidaemia [Unknown]
  - Fear [Unknown]
  - Plasma cell myeloma [Recovered/Resolved]
  - Benign prostatic hyperplasia [Unknown]
  - Dyspepsia [Unknown]
  - Pollakiuria [Unknown]
  - Muscle spasms [Unknown]
  - Rheumatoid arthritis [Recovered/Resolved]
  - Apnoea [Unknown]
  - Sensory disturbance [Unknown]
  - Myelodysplastic syndrome [Unknown]
  - Bicytopenia [Unknown]
  - Rheumatoid arthritis [Recovering/Resolving]
  - Gastrooesophageal reflux disease [Unknown]
  - Asthenia [Unknown]
  - Dysaesthesia [Unknown]
  - Hypertension [Unknown]
  - Dizziness [Recovered/Resolved]
  - Chest pain [Unknown]
  - Contusion [Unknown]
  - Nocturia [Unknown]
  - Feeling abnormal [Unknown]
  - Fatigue [Unknown]
  - Tendon disorder [Unknown]

NARRATIVE: CASE EVENT DATE: 201512
